FAERS Safety Report 10332640 (Version 1)
Quarter: 2014Q3

REPORT INFORMATION
  Report Type: Spontaneous
  Country: US (occurrence: US)
  Receive Date: 20140722
  Receipt Date: 20140722
  Transmission Date: 20150326
  Serious: No
  Sender: FDA-Public Use
  Company Number: US-ASTRAZENECA-2013SE82334

PATIENT
  Sex: Female

DRUGS (4)
  1. SEROQUEL XR [Suspect]
     Active Substance: QUETIAPINE FUMARATE
     Indication: SLEEP DISORDER
     Route: 048
     Dates: start: 2013
  2. PAXIL [Concomitant]
     Active Substance: PAROXETINE HYDROCHLORIDE
  3. XANAX [Concomitant]
     Active Substance: ALPRAZOLAM
  4. HYDROXYZINE [Concomitant]
     Active Substance: HYDROXYZINE\HYDROXYZINE HYDROCHLORIDE

REACTIONS (9)
  - Off label use [Unknown]
  - Facial paresis [Unknown]
  - Depression [Unknown]
  - Anxiety [Unknown]
  - Nasopharyngitis [Unknown]
  - Panic disorder [Unknown]
  - Nervous system disorder [Unknown]
  - Tremor [Unknown]
  - Tremor [Unknown]

NARRATIVE: CASE EVENT DATE: 2013
